FAERS Safety Report 18588418 (Version 1)
Quarter: 2020Q4

REPORT INFORMATION
  Report Type: Spontaneous
  Country: US (occurrence: US)
  Receive Date: 20201207
  Receipt Date: 20201207
  Transmission Date: 20210114
  Serious: No
  Sender: FDA-Public Use
  Company Number: US-SIGMAPHARM LABORATORIES, LLC-2020SIG00088

PATIENT
  Sex: Female
  Weight: 71.2 kg

DRUGS (9)
  1. LIOTHYRONINE SODIUM. [Suspect]
     Active Substance: LIOTHYRONINE SODIUM
     Indication: THYROXINE ABNORMAL
     Dosage: 10 MCG, 1X/DAY
     Route: 048
     Dates: start: 202006
  2. SYNTHROID [Suspect]
     Active Substance: LEVOTHYROXINE SODIUM
     Dosage: 176 MCG
     Dates: start: 2020
  3. AMINO ACIDS [Concomitant]
     Active Substance: AMINO ACIDS, SOURCE UNSPECIFIED
  4. LIOTHYRONINE SODIUM. [Suspect]
     Active Substance: LIOTHYRONINE SODIUM
     Indication: TRI-IODOTHYRONINE ABNORMAL
     Dosage: 5 MCG, 1X/DAY
     Route: 048
     Dates: start: 202001
  5. UNSPECIFIED MEDICATIONS (^VERY LARGE NUMBER^) [Concomitant]
  6. UNSPECIFIED HOMEOPATHIC MEDICINE [Concomitant]
  7. SYNTHROID [Suspect]
     Active Substance: LEVOTHYROXINE SODIUM
     Dosage: 137 MCG
     Dates: end: 2020
  8. UNSPECIFIED ^HERBS^ [Concomitant]
  9. UNSPECIFIED ^IMMUNE SUPPORT^ [Concomitant]

REACTIONS (4)
  - Tri-iodothyronine decreased [Not Recovered/Not Resolved]
  - Therapeutic product effect decreased [Not Recovered/Not Resolved]
  - Abdominal distension [Not Recovered/Not Resolved]
  - Blood thyroid stimulating hormone decreased [Not Recovered/Not Resolved]

NARRATIVE: CASE EVENT DATE: 2020
